FAERS Safety Report 10005990 (Version 2)
Quarter: 2014Q2

REPORT INFORMATION
  Report Type: Report from Study
  Country: BR (occurrence: BR)
  Receive Date: 20140313
  Receipt Date: 20140603
  Transmission Date: 20141212
  Serious: Yes (Disabling, Other)
  Sender: FDA-Public Use
  Company Number: BR-ROCHE-1361939

PATIENT
  Age: 49 Year
  Sex: Female
  Weight: 81 kg

DRUGS (2)
  1. ACTEMRA [Suspect]
     Indication: RHEUMATOID ARTHRITIS
     Route: 042
     Dates: start: 20131222
  2. VITAMIN C [Concomitant]

REACTIONS (5)
  - Syncope [Recovered/Resolved]
  - Arthropathy [Not Recovered/Not Resolved]
  - Chondropathy [Not Recovered/Not Resolved]
  - Dysmenorrhoea [Recovered/Resolved]
  - Headache [Recovered/Resolved]
